FAERS Safety Report 7681039-X (Version None)
Quarter: 2011Q3

REPORT INFORMATION
  Report Type: 
  Country: None (occurrence: None)
  Receive Date: 20110804
  Receipt Date: 20110724
  Transmission Date: 20111222
  Serious: Yes (Other)
  Sender: FDA-Public Use
  Company Number: B0736224A

PATIENT
  Age: 46 Year
  Sex: Male

DRUGS (4)
  1. FLUTICASONE PROPIONATE/SALMETEROL [Suspect]
     Dosage: THREE TIMESPER DAY/INHAL
     Route: 055
  2. FLUTICASONE PROPIONATE [Suspect]
     Dosage: INHALED
     Route: 055
  3. FLUTICASONE PROPIONATE [Suspect]
     Dosage: AS REQUIRED/INHALED
     Route: 055
  4. BECLOMETHASONE DIPROPIONATE [Suspect]
     Dosage: INHALED
     Route: 055

REACTIONS (1)
  - OSTEONECROSIS [None]
